FAERS Safety Report 7000212-7 (Version None)
Quarter: 2010Q3

REPORT INFORMATION
  Report Type: 
  Country: None (occurrence: None)
  Receive Date: 20100920
  Receipt Date: 20100909
  Transmission Date: 20110219
  Serious: Yes (Other)
  Sender: FDA-Public Use
  Company Number: ES-JNJFOC-20100903916

PATIENT
  Age: 8 Year
  Sex: Male

DRUGS (1)
  1. CONCERTA [Suspect]
     Indication: ATTENTION DEFICIT/HYPERACTIVITY DISORDER
     Route: 065

REACTIONS (7)
  - AFFECT LABILITY [None]
  - EXPRESSIVE LANGUAGE DISORDER [None]
  - HALLUCINATION, AUDITORY [None]
  - HALLUCINATION, VISUAL [None]
  - IRRITABILITY [None]
  - MENTAL DISORDER [None]
  - TIC [None]
